FAERS Safety Report 20672384 (Version 1)
Quarter: 2022Q2

REPORT INFORMATION
  Report Type: Spontaneous
  Country: CA (occurrence: CA)
  Receive Date: 20220405
  Receipt Date: 20220405
  Transmission Date: 20220720
  Serious: Yes (Life-Threatening)
  Sender: FDA-Public Use
  Company Number: CA-TEVA-2022-CA-2022810

PATIENT
  Age: 68 Year
  Sex: Male
  Weight: 81 kg

DRUGS (18)
  1. CIPROFLOXACIN [Interacting]
     Active Substance: CIPROFLOXACIN
     Indication: Urinary tract infection
     Dosage: 2 DOSAGE FORMS DAILY;
     Route: 048
  2. BACLOFEN [Concomitant]
     Active Substance: BACLOFEN
  3. BISOPROLOL [Concomitant]
     Active Substance: BISOPROLOL
     Route: 065
  4. COLACE [Concomitant]
     Active Substance: DOCUSATE SODIUM
  5. PERINDOPRIL [Concomitant]
     Active Substance: PERINDOPRIL
  6. DITROPAN XL [Concomitant]
     Active Substance: OXYBUTYNIN CHLORIDE
  7. DOXYCYCLINE [Concomitant]
     Active Substance: DOXYCYCLINE
  8. LACTULOSE [Concomitant]
     Active Substance: LACTULOSE
  9. POLYETHYLENE GLYCOL 3350 [Concomitant]
     Active Substance: POLYETHYLENE GLYCOL 3350
  10. LIPITOR [Concomitant]
     Active Substance: ATORVASTATIN CALCIUM
     Route: 065
  11. LYRICA [Concomitant]
     Active Substance: PREGABALIN
  12. MYRBETRIQ [Concomitant]
     Active Substance: MIRABEGRON
  13. PANTOPRAZOLE SODIUM [Concomitant]
     Active Substance: PANTOPRAZOLE SODIUM
  14. PRUCALOPRIDE SUCCINATE [Concomitant]
     Active Substance: PRUCALOPRIDE SUCCINATE
     Route: 065
  15. SENOKOT [Concomitant]
     Active Substance: SENNOSIDES
  16. NALOXONE HYDROCHLORIDE\OXYCODONE HYDROCHLORIDE [Concomitant]
     Active Substance: NALOXONE HYDROCHLORIDE\OXYCODONE HYDROCHLORIDE
  17. TIZANIDINE [Concomitant]
     Active Substance: TIZANIDINE
  18. VITAMIN D [Concomitant]
     Active Substance: VITAMIN D NOS

REACTIONS (6)
  - Altered state of consciousness [Recovered/Resolved]
  - Coma [Recovered/Resolved]
  - Endotracheal intubation [Recovered/Resolved]
  - Inhibitory drug interaction [Recovered/Resolved]
  - Mechanical ventilation [Recovered/Resolved]
  - Toxicity to various agents [Recovered/Resolved]
